FAERS Safety Report 9352541 (Version 2)
Quarter: 2013Q3

REPORT INFORMATION
  Report Type: Spontaneous
  Country: US (occurrence: US)
  Receive Date: 20130618
  Receipt Date: 20130716
  Transmission Date: 20140515
  Serious: Yes (Disabling)
  Sender: FDA-Public Use
  Company Number: US-009507513-1306USA005881

PATIENT
  Age: 54 Year
  Sex: Female

DRUGS (3)
  1. SAPHRIS [Suspect]
     Indication: DEPRESSION
     Dosage: 5 MG, ONCE DAILY
     Route: 060
     Dates: start: 20130508, end: 20130516
  2. CYMBALTA [Concomitant]
     Dosage: 90 MG, QD
  3. KLONOPIN [Concomitant]
     Dosage: .05 MG, QD

REACTIONS (9)
  - Ileus [Recovering/Resolving]
  - Off label use [Unknown]
  - Gastrointestinal disorder [Recovering/Resolving]
  - Feeling abnormal [Recovering/Resolving]
  - Lethargy [Recovering/Resolving]
  - Hepatic lesion [Unknown]
  - Weight decreased [Unknown]
  - Aphagia [Unknown]
  - Activities of daily living impaired [Unknown]
